FAERS Safety Report 19013170 (Version 1)
Quarter: 2021Q1

REPORT INFORMATION
  Report Type: Spontaneous
  Country: GB (occurrence: GB)
  Receive Date: 20210315
  Receipt Date: 20210315
  Transmission Date: 20210420
  Serious: Yes (Hospitalization)
  Sender: FDA-Public Use
  Company Number: GB-ELI_LILLY_AND_COMPANY-GB202103003247

PATIENT
  Age: 24 Year
  Sex: Male

DRUGS (7)
  1. DERMOL [BENZALKONIUM CHLORIDE;CHLORHEXIDINE H [Concomitant]
     Dosage: UNK UNK, UNKNOWN
     Route: 065
  2. AVEENO [Concomitant]
     Active Substance: DIMETHICONE\HOMOSALATE\OCTINOXATE\OCTISALATE\TITANIUM DIOXIDE
     Dosage: UNK, UNKNOWN
     Route: 065
  3. LORAZEPAM. [Concomitant]
     Active Substance: LORAZEPAM
     Dosage: UNK, UNKNOWN
     Route: 065
  4. OLANZAPINE. [Suspect]
     Active Substance: OLANZAPINE
     Indication: ACUTE PSYCHOSIS
     Dosage: 15 MG, EACH EVENING
     Route: 048
     Dates: start: 202102, end: 20210223
  5. DIAZEPAM. [Concomitant]
     Active Substance: DIAZEPAM
     Dosage: UNK, UNKNOWN
     Route: 065
  6. LORAZEPAM. [Concomitant]
     Active Substance: LORAZEPAM
     Dosage: UNK
  7. PROCYCLIDINE [Concomitant]
     Active Substance: PROCYCLIDINE
     Dosage: UNK, UNKNOWN
     Route: 065

REACTIONS (1)
  - Blood prolactin abnormal [Recovering/Resolving]

NARRATIVE: CASE EVENT DATE: 20210223
